FAERS Safety Report 6738203-3 (Version None)
Quarter: 2010Q2

REPORT INFORMATION
  Report Type: 
  Country: None (occurrence: None)
  Receive Date: 20100524
  Receipt Date: 20100514
  Transmission Date: 20101027
  Serious: Yes (Death, Hospitalization)
  Sender: FDA-Public Use
  Company Number: A0757692A

PATIENT
  Age: 63 Year
  Sex: Male
  Weight: 216 kg

DRUGS (21)
  1. AVANDAMET [Suspect]
     Route: 048
     Dates: start: 20031007
  2. AVANDIA [Suspect]
     Dosage: 4MG TWICE PER DAY
     Route: 048
     Dates: start: 20050501, end: 20061015
  3. GLUCOPHAGE [Concomitant]
  4. METFORMIN [Concomitant]
  5. LISINOPRIL [Concomitant]
  6. REGULAR INSULIN [Concomitant]
  7. LANTUS [Concomitant]
  8. LIPITOR [Concomitant]
  9. SPIRIVA [Concomitant]
  10. ALBUTEROL [Concomitant]
  11. ACCUPRIL [Concomitant]
  12. NITROGLYCERIN [Concomitant]
  13. NITROGLYCERIN [Concomitant]
  14. CENTRUM SILVER [Concomitant]
  15. VITAMIN C [Concomitant]
  16. INDERAL [Concomitant]
  17. DEXTRAN INJ [Concomitant]
  18. OXYGEN [Concomitant]
  19. ACETAMINOPHEN [Concomitant]
  20. TYLENOL PM [Concomitant]
  21. COUMADIN [Concomitant]

REACTIONS (2)
  - CARDIAC FAILURE CONGESTIVE [None]
  - SILENT MYOCARDIAL INFARCTION [None]
